FAERS Safety Report 6615678-1 (Version None)
Quarter: 2010Q1

REPORT INFORMATION
  Report Type: 
  Country: None (occurrence: None)
  Receive Date: 20100305
  Receipt Date: 20100227
  Transmission Date: 20100710
  Serious: Yes (Other)
  Sender: FDA-Public Use
  Company Number: CN-ROCHE-687745

PATIENT
  Age: 52 Year
  Sex: Female
  Weight: 65 kg

DRUGS (3)
  1. XELODA [Suspect]
     Indication: BREAST CANCER
     Dosage: FOR 5 TREATMENT COURSES.
     Route: 048
     Dates: start: 20070701, end: 20071101
  2. XELODA [Suspect]
     Dosage: FOR 5 TREATMENT COURSES.
     Route: 048
     Dates: start: 20080401, end: 20080801
  3. XELODA [Suspect]
     Route: 048
     Dates: start: 20090801, end: 20091225

REACTIONS (2)
  - BREAST CANCER METASTATIC [None]
  - DRUG INEFFECTIVE [None]
